FAERS Safety Report 23979446 (Version 3)
Quarter: 2024Q4

REPORT INFORMATION
  Report Type: Report from Study
  Country: CA (occurrence: CA)
  Receive Date: 20240615
  Receipt Date: 20241008
  Transmission Date: 20250115
  Serious: Yes (Other)
  Sender: ABBVIE
  Company Number: CA-ABBVIE-5796620

PATIENT
  Age: 61 Year
  Sex: Female

DRUGS (2)
  1. SKYRIZI [Suspect]
     Active Substance: RISANKIZUMAB-RZAA
     Indication: Crohn^s disease
     Route: 058
     Dates: start: 20240613
  2. SKYRIZI [Suspect]
     Active Substance: RISANKIZUMAB-RZAA
     Dosage: LAST ADMIN DATE 2024
     Route: 058
     Dates: start: 20240314

REACTIONS (11)
  - Intestinal obstruction [Unknown]
  - Gastrointestinal disorder [Unknown]
  - Malaise [Unknown]
  - Abdominal distension [Not Recovered/Not Resolved]
  - Abdominal pain [Unknown]
  - Nausea [Unknown]
  - Constipation [Unknown]
  - Enteritis [Unknown]
  - Diarrhoea [Unknown]
  - Weight decreased [Unknown]
  - Drug ineffective [Unknown]

NARRATIVE: CASE EVENT DATE: 20240101
